FAERS Safety Report 6698654-2 (Version None)
Quarter: 2010Q2

REPORT INFORMATION
  Report Type: 
  Country: None (occurrence: None)
  Receive Date: 20100427
  Receipt Date: 20100413
  Transmission Date: 20101027
  Serious: Yes (Other)
  Sender: FDA-Public Use
  Company Number: PHHY2010US26029

PATIENT
  Sex: Female

DRUGS (9)
  1. RECLAST [Suspect]
     Dosage: 5 MG
     Route: 042
     Dates: start: 20091201
  2. COZAAR [Concomitant]
  3. COREG [Concomitant]
  4. COUMADIN [Concomitant]
  5. CITRACAL [Concomitant]
  6. VITAMINS [Concomitant]
  7. CALCIUM [Concomitant]
  8. VITAMIN D [Concomitant]
     Dosage: 2000 UNITS
  9. COQ10 [Concomitant]

REACTIONS (5)
  - HYPOTONIA [None]
  - MOBILITY DECREASED [None]
  - MUSCLE DISORDER [None]
  - MYALGIA [None]
  - TENDERNESS [None]
